FAERS Safety Report 21419100 (Version 1)
Quarter: 2022Q4

REPORT INFORMATION
  Report Type: Spontaneous
  Country: US (occurrence: None)
  Receive Date: 20221006
  Receipt Date: 20221006
  Transmission Date: 20230113
  Serious: Yes (unspecified)
  Sender: FDA-Public Use
  Company Number: None

PATIENT
  Age: 29 Year
  Sex: Female
  Weight: 55 kg

DRUGS (4)
  1. VENOFER [Suspect]
     Active Substance: IRON SUCROSE
     Indication: Iron deficiency anaemia
     Dosage: OTHER FREQUENCY : ONE TIME INFUSION;?
     Route: 041
     Dates: start: 20221005, end: 20221005
  2. Diphenhydramine 25 mg IVP [Concomitant]
     Dates: start: 20221005, end: 20221005
  3. Hydrocortisone 100 mg IVP [Concomitant]
     Dates: start: 20221005, end: 20221005
  4. EpiPen 0.3 SubCut [Concomitant]
     Dates: start: 20221005, end: 20221005

REACTIONS (6)
  - Infusion related reaction [None]
  - Paraesthesia [None]
  - Urticaria [None]
  - Dyspnoea [None]
  - Blood pressure decreased [None]
  - Heart rate decreased [None]

NARRATIVE: CASE EVENT DATE: 20221005
